FAERS Safety Report 5072855-1 (Version None)
Quarter: 2006Q3

REPORT INFORMATION
  Report Type: 
  Country: None (occurrence: None)
  Receive Date: 20060802
  Receipt Date: 20060720
  Transmission Date: 20061208
  Serious: Yes (Hospitalization)
  Sender: FDA-Public Use
  Company Number: HQWYE254121JUL06

PATIENT
  Age: 18 Year
  Sex: Female

DRUGS (4)
  1. PREMARIN [Suspect]
     Indication: METRORRHAGIA
     Dosage: 0.625MG ORAL; SEE IMAGE
     Route: 048
     Dates: start: 20030501, end: 20030601
  2. PREMARIN [Suspect]
     Indication: METRORRHAGIA
     Dosage: 0.625MG ORAL; SEE IMAGE
     Route: 048
     Dates: start: 20030901, end: 20030901
  3. NORGESTREL AND ETHINYL ESTRADIOL [Suspect]
     Indication: METRORRHAGIA
     Dosage: ORAL; SEE IMAGE
     Route: 048
     Dates: start: 20030901, end: 20030901
  4. TURMERIC (TURMERIC, ) [Suspect]

REACTIONS (10)
  - GASTRIC VARICES [None]
  - HAEMATOCRIT DECREASED [None]
  - HAEMOGLOBIN DECREASED [None]
  - HEPATIC CIRRHOSIS [None]
  - HEPATIC HAEMORRHAGE [None]
  - HEPATIC NECROSIS [None]
  - LIVER DISORDER [None]
  - PROTHROMBIN TIME PROLONGED [None]
  - SPLENOMEGALY [None]
  - VARICES OESOPHAGEAL [None]
